FAERS Safety Report 24647221 (Version 1)
Quarter: 2024Q4

REPORT INFORMATION
  Report Type: Spontaneous
  Country: US (occurrence: US)
  Receive Date: 20241121
  Receipt Date: 20241121
  Transmission Date: 20250114
  Serious: No
  Sender: MYLAN
  Company Number: US-MYLANLABS-2024M1102428

PATIENT

DRUGS (1)
  1. BREYNA [Suspect]
     Active Substance: BUDESONIDE\FORMOTEROL FUMARATE
     Indication: Product used for unknown indication
     Dosage: 160 MICROGRAM, BID (160/4.5MCG BID)
     Route: 055

REACTIONS (6)
  - Dyspnoea [Unknown]
  - Asthenia [Unknown]
  - Pulmonary pain [Unknown]
  - Back pain [Unknown]
  - Product substitution issue [Unknown]
  - Therapeutic response decreased [Unknown]
